FAERS Safety Report 15624388 (Version 2)
Quarter: 2018Q4

REPORT INFORMATION
  Report Type: Spontaneous
  Country: GB (occurrence: GB)
  Receive Date: 20181116
  Receipt Date: 20181122
  Transmission Date: 20190205
  Serious: Yes (Death)
  Sender: FDA-Public Use
  Company Number: GB-ROCHE-2214162

PATIENT
  Age: 97 Year
  Sex: Male
  Weight: 51 kg

DRUGS (2)
  1. TAMIFLU [Suspect]
     Active Substance: OSELTAMIVIR PHOSPHATE
     Indication: INFLUENZA
     Route: 048
     Dates: start: 20180108, end: 20180111
  2. TAMIFLU [Suspect]
     Active Substance: OSELTAMIVIR PHOSPHATE
     Indication: PNEUMONIA
     Dosage: 3 DOSES
     Route: 048
     Dates: start: 20180203

REACTIONS (1)
  - Thrombocytopenia [Fatal]

NARRATIVE: CASE EVENT DATE: 20180111
